FAERS Safety Report 4733014-2 (Version None)
Quarter: 2005Q3

REPORT INFORMATION
  Report Type: 
  Country: None (occurrence: None)
  Receive Date: 20050801
  Receipt Date: 20050801
  Transmission Date: 20060218
  Serious: Yes (Hospitalization)
  Sender: FDA-Public Use
  Company Number: None

PATIENT
  Age: 56 Year
  Sex: Male
  Weight: 86 kg

DRUGS (7)
  1. CLOZAPINE [Suspect]
     Indication: SCHIZOPHRENIA
     Dosage: 100 MG QPM ORAL
     Route: 048
     Dates: start: 20050504, end: 20050519
  2. CLOZAPINE [Suspect]
     Indication: SCHIZOPHRENIA
     Dosage: 25 MG QAM ORAL
     Route: 048
     Dates: start: 20050504, end: 20050519
  3. DIVALPROEX SODIUM [Concomitant]
  4. ALBUTEROL [Concomitant]
  5. METFORMIN HCL [Concomitant]
  6. HALOPERIDOL DECAONATE [Concomitant]
  7. RANITIDINE HCL [Concomitant]

REACTIONS (6)
  - DIZZINESS [None]
  - DYSPNOEA [None]
  - HYPOXIA [None]
  - INFLUENZA LIKE ILLNESS [None]
  - PNEUMONITIS [None]
  - PYREXIA [None]
